FAERS Safety Report 8275998-4 (Version None)
Quarter: 2012Q2

REPORT INFORMATION
  Report Type: 
  Country: None (occurrence: None)
  Receive Date: 20120412
  Receipt Date: 20120410
  Transmission Date: 20120825
  Serious: Yes (Hospitalization, Other)
  Sender: FDA-Public Use
  Company Number: US-PFIZER INC-2011151482

PATIENT
  Sex: Female

DRUGS (5)
  1. PERCOCET [Concomitant]
     Indication: ROAD TRAFFIC ACCIDENT
  2. XANAX [Concomitant]
     Indication: BACK PAIN
     Dosage: UNK
     Dates: start: 20080801
  3. PERCOCET [Concomitant]
     Indication: BACK PAIN
     Dosage: UNK
     Dates: start: 20070101
  4. CHANTIX [Suspect]
     Indication: SMOKING CESSATION THERAPY
     Dosage: STARTER PACK AND 1MG
     Route: 048
     Dates: start: 20090101, end: 20090501
  5. SOMA [Concomitant]
     Indication: BACK PAIN
     Dosage: UNK
     Dates: start: 20080801

REACTIONS (5)
  - INTENTIONAL OVERDOSE [None]
  - SUICIDE ATTEMPT [None]
  - ANXIETY [None]
  - TOBACCO USER [None]
  - DEPRESSION [None]
